FAERS Safety Report 7200036-1 (Version None)
Quarter: 2010Q4

REPORT INFORMATION
  Report Type: 
  Country: None (occurrence: None)
  Receive Date: 20101214
  Receipt Date: 20101201
  Transmission Date: 20110411
  Serious: Yes (Life-Threatening, Hospitalization)
  Sender: FDA-Public Use
  Company Number: IPC201012-000313

PATIENT
  Age: 73 Year
  Sex: Female

DRUGS (10)
  1. METFORMIN HYDROCHLORIDE [Suspect]
     Dosage: 850 MG 3 TIMES DAILY
  2. ACENOCUMAROL [Suspect]
  3. BISOPROLOL [Suspect]
  4. TORSEMIDE [Suspect]
  5. DIGOXIN [Suspect]
  6. ESCITALOPRAM [Suspect]
  7. LORMETAZEPAM [Suspect]
  8. TERBUTALINE [Suspect]
  9. TIOTROPIUM BROMIDE [Suspect]
  10. GLARGINE INSULIN [Suspect]

REACTIONS (20)
  - ACTIVATED PARTIAL THROMBOPLASTIN TIME PROLONGED [None]
  - ANAEMIA [None]
  - ARRHYTHMIA [None]
  - BLOOD GLUCOSE INCREASED [None]
  - CARDIAC FAILURE [None]
  - CONTINUOUS HAEMODIAFILTRATION [None]
  - HEART RATE DECREASED [None]
  - HEPATIC FAILURE [None]
  - INTERNATIONAL NORMALISED RATIO INCREASED [None]
  - LACTIC ACIDOSIS [None]
  - LEUKOCYTOSIS [None]
  - LIVER INJURY [None]
  - NEUTROPHILIA [None]
  - PANCREATITIS [None]
  - PLEURAL EFFUSION [None]
  - POLYDIPSIA [None]
  - POLYURIA [None]
  - PROTHROMBIN TIME PROLONGED [None]
  - RENAL FAILURE [None]
  - THROMBOCYTOPENIA [None]
